FAERS Safety Report 10823037 (Version 1)
Quarter: 2015Q1

REPORT INFORMATION
  Report Type: Report from Study
  Country: US (occurrence: US)
  Receive Date: 20150218
  Receipt Date: 20150218
  Transmission Date: 20150721
  Serious: No
  Sender: FDA-Public Use
  Company Number: US-ABBVIE-14K-163-1308010-00

PATIENT
  Sex: Male

DRUGS (1)
  1. HUMIRA [Suspect]
     Active Substance: ADALIMUMAB
     Indication: PSORIASIS
     Route: 058
     Dates: start: 20120928, end: 20141108

REACTIONS (4)
  - Rash [Unknown]
  - Urticaria [Not Recovered/Not Resolved]
  - Drug specific antibody present [Unknown]
  - Erythema [Not Recovered/Not Resolved]
